FAERS Safety Report 5709399-7 (Version None)
Quarter: 2008Q2

REPORT INFORMATION
  Report Type: 
  Country: None (occurrence: None)
  Receive Date: 20080418
  Receipt Date: 20080408
  Transmission Date: 20081010
  Serious: Yes (Hospitalization, Other)
  Sender: FDA-Public Use
  Company Number: GB-ABBOTT-08P-167-0444625-00

PATIENT
  Age: 37 Year
  Sex: Male

DRUGS (3)
  1. HUMIRA [Suspect]
     Indication: PSORIASIS
     Dates: start: 20070601, end: 20071201
  2. HUMIRA [Suspect]
     Indication: PSORIATIC ARTHROPATHY
  3. ACITRETIN [Concomitant]
     Indication: DRUG USE FOR UNKNOWN INDICATION
     Dosage: LOW DOSE

REACTIONS (6)
  - DISCOMFORT [None]
  - LIVER FUNCTION TEST ABNORMAL [None]
  - PSORIASIS [None]
  - PUSTULAR PSORIASIS [None]
  - SWELLING [None]
  - WHEEZING [None]
